FAERS Safety Report 5097347-5 (Version None)
Quarter: 2006Q3

REPORT INFORMATION
  Report Type: 
  Country: None (occurrence: None)
  Receive Date: 20060906
  Receipt Date: 20060724
  Transmission Date: 20061208
  Serious: Yes (Hospitalization, Disabling)
  Sender: FDA-Public Use
  Company Number: US-ROCHE-456931

PATIENT
  Age: 43 Year
  Sex: Female
  Weight: 53 kg

DRUGS (12)
  1. MYCOPHENOLATE MOFETIL [Suspect]
     Route: 048
     Dates: start: 20050808
  2. CP-690550 [Suspect]
     Route: 048
     Dates: start: 20050808, end: 20050913
  3. PREDNISONE TAB [Suspect]
     Route: 048
     Dates: start: 20050808
  4. MULTIVITAMIN NOS [Concomitant]
     Route: 048
     Dates: start: 20050812
  5. ASCORBIC ACID [Concomitant]
     Route: 048
     Dates: start: 20050812
  6. FERROUS SULFATE TAB [Concomitant]
     Route: 048
     Dates: start: 20050812
  7. AXID [Concomitant]
     Route: 048
     Dates: start: 20050812
  8. NYSTATIN [Concomitant]
     Route: 048
     Dates: start: 20050811
  9. VALCYTE [Concomitant]
     Route: 048
     Dates: start: 20050812
  10. BACTRIM [Concomitant]
     Route: 048
     Dates: start: 20050811
  11. NORVASC [Concomitant]
     Route: 048
     Dates: start: 20050811
  12. METOPROLOL TARTRATE [Concomitant]
     Route: 048
     Dates: start: 20050811

REACTIONS (8)
  - ANASTOMOTIC STENOSIS [None]
  - EMBOLIC STROKE [None]
  - ENDOCARDITIS [None]
  - ENDOCARDITIS ENTEROCOCCAL [None]
  - POST PROCEDURAL COMPLICATION [None]
  - SINUS DISORDER [None]
  - SWELLING [None]
  - VASCULAR GRAFT COMPLICATION [None]
